FAERS Safety Report 11839296 (Version 3)
Quarter: 2016Q1

REPORT INFORMATION
  Report Type: Spontaneous
  Country: JP (occurrence: JP)
  Receive Date: 20151216
  Receipt Date: 20160125
  Transmission Date: 20160525
  Serious: Yes (Life-Threatening, Other)
  Sender: FDA-Public Use
  Company Number: JP-009507513-1512JPN005876

PATIENT
  Age: 82 Year
  Sex: Male
  Weight: 47 kg

DRUGS (14)
  1. ATROPINE. [Concomitant]
     Active Substance: ATROPINE
     Indication: PROPHYLAXIS
     Dosage: DIVIDED DOSE FREQUENCY UNKNOWN
     Route: 042
     Dates: start: 20151204, end: 20151204
  2. VOLTAREN [Concomitant]
     Active Substance: DICLOFENAC SODIUM
     Indication: PROPHYLAXIS
     Dosage: 50 MG, QD
     Route: 054
     Dates: start: 20151204, end: 20151204
  3. PRIMPERAN [Concomitant]
     Active Substance: METOCLOPRAMIDE HYDROCHLORIDE
     Indication: PROPHYLAXIS OF NAUSEA AND VOMITING
     Dosage: DIVIDED DOSE FREQUENCY UNKNOWN
     Route: 042
     Dates: start: 20151204, end: 20151204
  4. ANAPEINE [Concomitant]
     Active Substance: ROPIVACAINE HYDROCHLORIDE
     Indication: EPIDURAL ANAESTHESIA
     Dosage: 100 ML, TID
     Route: 008
     Dates: start: 20151204, end: 20151204
  5. BRIDION [Concomitant]
     Active Substance: SUGAMMADEX
     Indication: NEUROMUSCULAR BLOCKADE REVERSAL
     Dosage: DIVIDED DOSE FREQUENCY UNKNOWN
     Route: 042
     Dates: start: 20151204, end: 20151204
  6. NEOSYNESIN [Concomitant]
     Active Substance: PHENYLEPHRINE HYDROCHLORIDE
     Indication: BLOOD PRESSURE DECREASED
     Dosage: 1 G, TID
     Route: 042
     Dates: start: 20151204, end: 20151204
  7. POTASSIUM CHLORIDE. [Concomitant]
     Active Substance: POTASSIUM CHLORIDE
     Indication: ELECTROLYTE SUBSTITUTION THERAPY
     Dosage: 20 MMOL, BID
     Route: 042
     Dates: start: 20151204, end: 20151204
  8. DIPRIVAN [Concomitant]
     Active Substance: PROPOFOL
     Indication: SEDATIVE THERAPY
     Dosage: DAILY DOSE UNKNOWN, TARGET VALUE: 2.5 MIRCOGRAM/ML
     Route: 042
     Dates: start: 20151204, end: 20151204
  9. EPHEDRINE HYDROCHLORIDE [Concomitant]
     Active Substance: EPHEDRINE HYDROCHLORIDE
     Indication: BLOOD PRESSURE DECREASED
     Dosage: 40 MG, TID
     Route: 042
     Dates: start: 20151204, end: 20151204
  10. WYSTAL [Concomitant]
     Active Substance: CEFOPERAZONE SODIUM\SULBACTAM SODIUM
     Indication: ANTIBIOTIC PROPHYLAXIS
     Dosage: DIVIDED DOSE FREQUENCY UNKNOWN
     Route: 042
     Dates: start: 20151204, end: 20151204
  11. ESLAX INTRAVENOUS 25MG/2.5ML [Suspect]
     Active Substance: ROCURONIUM BROMIDE
     Indication: NEUROMUSCULAR BLOCKING THERAPY
     Dosage: DIVIDED DOSE FREQUENCY UNKNOWN
     Route: 042
     Dates: start: 20151204, end: 20151204
  12. HUMULIN R [Concomitant]
     Active Substance: INSULIN HUMAN
     Indication: DIABETES MELLITUS MANAGEMENT
     Dosage: 13 (UNDER 1000 UNITS) 1 DAY, DIVIDED DOSE FREQUENCY UNKNOWN
     Route: 042
     Dates: start: 20151204, end: 20151204
  13. ULTIVA [Concomitant]
     Active Substance: REMIFENTANIL HYDROCHLORIDE
     Indication: ANALGESIC THERAPY
     Dosage: DAILY DOSE UNKNOWN (STRENGTH 0.5-0.06 GAMMA/KG/MIN)
     Route: 042
     Dates: start: 20151204, end: 20151204
  14. DOPRAM [Concomitant]
     Active Substance: DOXAPRAM HYDROCHLORIDE
     Indication: TACHYPNOEA
     Dosage: DIVIDED DOSE FREQUENCY UNKNOWN)
     Route: 042
     Dates: start: 20151204, end: 20151204

REACTIONS (4)
  - Respiratory arrest [Recovered/Resolved]
  - Recurrence of neuromuscular blockade [Recovered/Resolved]
  - Body temperature decreased [Unknown]
  - Poor peripheral circulation [Unknown]

NARRATIVE: CASE EVENT DATE: 20151204
